FAERS Safety Report 9415707 (Version 2)
Quarter: 2013Q3

REPORT INFORMATION
  Report Type: Spontaneous
  Country: JP (occurrence: JP)
  Receive Date: 20130723
  Receipt Date: 20130804
  Transmission Date: 20140515
  Serious: Yes (Other)
  Sender: FDA-Public Use
  Company Number: JP-009507513-1307JPN011367

PATIENT
  Age: 78 Year
  Sex: Male

DRUGS (9)
  1. GASTER [Suspect]
     Dosage: 20 MG, QD
     Route: 048
     Dates: start: 2009
  2. SEROQUEL [Suspect]
     Dosage: 25 MG, QD
     Route: 048
     Dates: start: 2009
  3. PAXIL CR [Concomitant]
     Dosage: UNK
     Dates: start: 2009
  4. URSO [Concomitant]
     Dosage: UNK
     Dates: start: 2009
  5. GASMOTIN [Concomitant]
     Dosage: UNK
     Dates: start: 2009
  6. UBRETID [Concomitant]
     Dosage: UNK
     Dates: start: 2009
  7. MAGMITT [Concomitant]
     Dosage: UNK
     Dates: start: 2009
  8. LENDORMIN [Concomitant]
     Dosage: UNK
     Dates: start: 2009
  9. JANUVIA TABLETS 25MG [Concomitant]
     Dosage: UNK
     Route: 048

REACTIONS (2)
  - Blood glucose increased [Unknown]
  - Intentional drug misuse [Unknown]
